FAERS Safety Report 7353708-2 (Version None)
Quarter: 2011Q1

REPORT INFORMATION
  Report Type: 
  Country: None (occurrence: None)
  Receive Date: 20110310
  Receipt Date: 20110310
  Transmission Date: 20110831
  Serious: No
  Sender: FDA-Public Use
  Company Number: None

PATIENT
  Sex: Female
  Weight: 58.9676 kg

DRUGS (1)
  1. ACTEMRA [Suspect]
     Indication: RHEUMATOID ARTHRITIS
     Dates: start: 20101012, end: 20110110

REACTIONS (3)
  - SWOLLEN TONGUE [None]
  - DRUG HYPERSENSITIVITY [None]
  - ABDOMINAL PAIN [None]
